FAERS Safety Report 10485498 (Version 2)
Quarter: 2014Q4

REPORT INFORMATION
  Report Type: Not Available
  Country: US (occurrence: US)
  Receive Date: 20140930
  Receipt Date: 20141007
  Transmission Date: 20150528
  Serious: Yes (Death, Life-Threatening, Hospitalization)
  Sender: FDA-Public Use
  Company Number: US-ONYX-2014-2141

PATIENT
  Age: 79 Year
  Sex: Male

DRUGS (1)
  1. KYPROLIS [Suspect]
     Active Substance: CARFILZOMIB
     Indication: PLASMA CELL MYELOMA
     Route: 042
     Dates: start: 20140512, end: 20140623

REACTIONS (6)
  - Acute myocardial infarction [Fatal]
  - Pneumonia [Unknown]
  - Respiratory arrest [Unknown]
  - Meningoencephalitis herpetic [Fatal]
  - Cardiac failure [Unknown]
  - Asthenia [Unknown]

NARRATIVE: CASE EVENT DATE: 201406
